FAERS Safety Report 4357841-9 (Version None)
Quarter: 2004Q2

REPORT INFORMATION
  Report Type: 
  Country: None (occurrence: None)
  Receive Date: 20040512
  Receipt Date: 20040426
  Transmission Date: 20050107
  Serious: Yes (Hospitalization)
  Sender: FDA-Public Use
  Company Number: 201647

PATIENT
  Age: 61 Year
  Sex: Female

DRUGS (5)
  1. HERCEPTIN [Suspect]
     Indication: BREAST CANCER
     Dosage: 315 MG, 1/WEEK, INTRAVENOUS
     Route: 042
     Dates: start: 20020826, end: 20030701
  2. TAXOTERE [Suspect]
     Indication: BREAST CANCER
     Dosage: 150 MG, Q3WK, INTRAVENOUS
     Route: 042
     Dates: start: 20020826, end: 20021029
  3. DOXORUBICINE (DOXORUBICINE HYDROCHLORIDE, DOXORUBICIN) [Suspect]
     Indication: BREAST CANCER
     Dosage: 92 MG, Q3W, INTRAVENOUS
     Route: 042
  4. CYCLOPHOSPHAMIDE [Suspect]
     Indication: BREAST CANCER
     Dosage: 920 MG, Q3W, INTRAVENOUS
     Route: 042
  5. ARIMIDEX [Concomitant]

REACTIONS (12)
  - ASTHENIA [None]
  - EJECTION FRACTION DECREASED [None]
  - FEELING HOT [None]
  - MITRAL VALVE INCOMPETENCE [None]
  - NAUSEA [None]
  - PALPITATIONS [None]
  - SUPRAVENTRICULAR EXTRASYSTOLES [None]
  - SYNCOPE [None]
  - TACHYCARDIA [None]
  - TONGUE DISORDER [None]
  - TRICUSPID VALVE INCOMPETENCE [None]
  - VENTRICULAR EXTRASYSTOLES [None]
